FAERS Safety Report 4927633-8 (Version None)
Quarter: 2006Q1

REPORT INFORMATION
  Report Type: 
  Country: None (occurrence: None)
  Receive Date: 20060228
  Receipt Date: 20051012
  Transmission Date: 20060701
  Serious: Yes (Hospitalization, Disabling)
  Sender: FDA-Public Use
  Company Number: US-MERCK-0510USA06927

PATIENT
  Age: 38 Year
  Sex: Male
  Weight: 177 kg

DRUGS (5)
  1. VIOXX [Suspect]
     Indication: OSTEOARTHRITIS
     Route: 048
     Dates: start: 20010101, end: 20021017
  2. VIOXX [Suspect]
     Route: 048
     Dates: start: 20010101, end: 20021017
  3. HYDROCODONE HYDROCHLORIDE [Concomitant]
     Indication: PAIN
     Route: 065
     Dates: start: 20000101
  4. ACTOS [Concomitant]
     Indication: DIABETES MELLITUS
     Route: 065
  5. ORABET (METFORMIN HYDROCHLORIDE) [Concomitant]
     Indication: DIABETES MELLITUS
     Route: 065

REACTIONS (11)
  - ARTHROPATHY [None]
  - BLOOD CHOLESTEROL INCREASED [None]
  - CARDIAC DISORDER [None]
  - CHEST PAIN [None]
  - DYSPEPSIA [None]
  - GASTRIC DISORDER [None]
  - HYPERTENSION [None]
  - INFECTION [None]
  - MYOCARDIAL INFARCTION [None]
  - NON-CARDIAC CHEST PAIN [None]
  - SLEEP APNOEA SYNDROME [None]
